FAERS Safety Report 22536307 (Version 3)
Quarter: 2023Q2

REPORT INFORMATION
  Report Type: Spontaneous
  Country: JP (occurrence: JP)
  Receive Date: 20230608
  Receipt Date: 20230623
  Transmission Date: 20230721
  Serious: Yes (Death, Hospitalization)
  Sender: FDA-Public Use
  Company Number: JP-DSJP-DSJ-2023-122627AA

PATIENT
  Age: 92 Year
  Sex: Female
  Weight: 62.4 kg

DRUGS (1)
  1. EDOXABAN TOSYLATE [Suspect]
     Active Substance: EDOXABAN TOSYLATE
     Indication: Atrial fibrillation
     Dosage: 30 MG, QD
     Route: 048

REACTIONS (4)
  - Death [Fatal]
  - Cardiac failure [Unknown]
  - Gastrointestinal haemorrhage [Not Recovered/Not Resolved]
  - Gastrointestinal angiectasia [Not Recovered/Not Resolved]
